FAERS Safety Report 5823277-4 (Version None)
Quarter: 2008Q3

REPORT INFORMATION
  Report Type: 
  Country: None (occurrence: None)
  Receive Date: 20080724
  Receipt Date: 20080724
  Transmission Date: 20090109
  Serious: No
  Sender: FDA-Public Use
  Company Number: None

PATIENT
  Age: 7 Year
  Sex: Female
  Weight: 37.195 kg

DRUGS (1)
  1. SINGULAIR [Suspect]
     Indication: ASTHMA
     Dosage: 5MG  ONCE DAILY DENTAL
     Route: 004
     Dates: start: 20071001, end: 20080717

REACTIONS (6)
  - ABNORMAL BEHAVIOUR [None]
  - AGGRESSION [None]
  - MORBID THOUGHTS [None]
  - PERSONALITY CHANGE [None]
  - VERBAL ABUSE [None]
  - WEIGHT INCREASED [None]
